FAERS Safety Report 17971787 (Version 2)
Quarter: 2020Q3

REPORT INFORMATION
  Report Type: Report from Study
  Country: US (occurrence: US)
  Receive Date: 20200701
  Receipt Date: 20200718
  Transmission Date: 20201103
  Serious: No
  Sender: FDA-Public Use
  Company Number: NVSC2020US185011

PATIENT
  Age: 92 Year
  Sex: Female

DRUGS (1)
  1. ENTRESTO [Suspect]
     Active Substance: SACUBITRIL\VALSARTAN
     Indication: CARDIAC FAILURE
     Dosage: 50 MG, BID
     Route: 048
     Dates: start: 202002

REACTIONS (2)
  - Weight decreased [Not Recovered/Not Resolved]
  - Tendonitis [Recovering/Resolving]

NARRATIVE: CASE EVENT DATE: 202002
